FAERS Safety Report 20681358 (Version 1)
Quarter: 2022Q2

REPORT INFORMATION
  Report Type: Spontaneous
  Country: US (occurrence: US)
  Receive Date: 20220406
  Receipt Date: 20220406
  Transmission Date: 20220721
  Serious: Yes (Other)
  Sender: FDA-Public Use
  Company Number: US-SA-SAC20220404001013

PATIENT
  Sex: Female

DRUGS (7)
  1. TAXOTERE [Suspect]
     Active Substance: DOCETAXEL
     Indication: Breast cancer stage II
     Dates: start: 20211128
  2. TAXOTERE [Suspect]
     Active Substance: DOCETAXEL
     Indication: HER2 positive breast cancer
  3. CARBOPLATIN [Concomitant]
     Active Substance: CARBOPLATIN
  4. NEULASTA [Concomitant]
     Active Substance: PEGFILGRASTIM
  5. BENADRYL [Concomitant]
     Active Substance: DIPHENHYDRAMINE HYDROCHLORIDE
  6. PALONOSETRON [Concomitant]
     Active Substance: PALONOSETRON
  7. PERJETA [Concomitant]
     Active Substance: PERTUZUMAB

REACTIONS (2)
  - Pain in extremity [Unknown]
  - Neuropathy peripheral [Unknown]
